FAERS Safety Report 6160216-3 (Version None)
Quarter: 2009Q2

REPORT INFORMATION
  Report Type: 
  Country: None (occurrence: None)
  Receive Date: 20090420
  Receipt Date: 20090414
  Transmission Date: 20091009
  Serious: Yes (Hospitalization)
  Sender: FDA-Public Use
  Company Number: B0564415A

PATIENT
  Sex: Male

DRUGS (4)
  1. LAMICTAL [Suspect]
     Indication: EPILEPSY
     Dosage: 125MG TWICE PER DAY
     Route: 048
     Dates: start: 20081202, end: 20090221
  2. ALEVIATIN [Concomitant]
     Indication: EPILEPSY
     Dosage: 100MG TWICE PER DAY
     Route: 048
     Dates: start: 20090203
  3. PRIMIDONE [Concomitant]
     Indication: EPILEPSY
     Dosage: 500MG TWICE PER DAY
     Route: 048
     Dates: start: 20090203
  4. TOPIRAMATE [Concomitant]
     Indication: EPILEPSY
     Dosage: 150MG TWICE PER DAY
     Route: 048
     Dates: start: 20090203

REACTIONS (22)
  - ARTHRALGIA [None]
  - C-REACTIVE PROTEIN INCREASED [None]
  - CHEST PAIN [None]
  - CHILLS [None]
  - DERMATITIS ACNEIFORM [None]
  - DIFFERENTIAL WHITE BLOOD CELL COUNT ABNORMAL [None]
  - DRUG ERUPTION [None]
  - FOLLICULITIS [None]
  - HEADACHE [None]
  - INFECTION [None]
  - ORAL MUCOSAL ERYTHEMA [None]
  - PYREXIA [None]
  - RASH [None]
  - RASH ERYTHEMATOUS [None]
  - RASH GENERALISED [None]
  - RASH PAPULAR [None]
  - RASH PUSTULAR [None]
  - STOMATITIS [None]
  - TONGUE ERUPTION [None]
  - TONGUE ULCERATION [None]
  - UVEITIS [None]
  - VIRAL INFECTION [None]
